FAERS Safety Report 12917633 (Version 1)
Quarter: 2016Q4

REPORT INFORMATION
  Report Type: Spontaneous
  Country: US (occurrence: US)
  Receive Date: 20161107
  Receipt Date: 20161107
  Transmission Date: 20170207
  Serious: No
  Sender: FDA-Public Use
  Company Number: US-PFIZER INC-2016513046

PATIENT
  Age: 61 Year
  Sex: Female

DRUGS (15)
  1. VENTOLIN HFA [Concomitant]
     Active Substance: ALBUTEROL SULFATE
     Indication: WHEEZING
     Dosage: 2 DF, AS NEEDED (90 MCG/ACTUATION, EVERY 6 HOURS)
     Route: 055
  2. FERROUS SULFATE. [Concomitant]
     Active Substance: FERROUS SULFATE
     Dosage: 140 MG, UNK
  3. CIPRO [Concomitant]
     Active Substance: CIPROFLOXACIN HYDROCHLORIDE
     Dosage: 500 MG, 2X/DAY
     Route: 048
  4. PROVENTIL [Concomitant]
     Active Substance: ALBUTEROL
     Indication: WHEEZING
     Dosage: 3 ML, AS NEEDED (3 MLS (2.5 MG TOTAL, EVERY 6 HOURS ))
     Route: 055
  5. BUTALBITAL COMPOUND W/ CODEINE [Concomitant]
     Indication: PAIN
     Dosage: 1 DF, AS NEEDED (EVERY 6 HOURS)
     Route: 048
  6. FOLIC ACID B-6 + B-12 [Concomitant]
     Dosage: 1 DF, DAILY [FOLIC ACID 2.5 MG]/ [VIT B6 25 MG] / [VIT B12 1 MG]
     Route: 048
  7. REVATIO [Suspect]
     Active Substance: SILDENAFIL CITRATE
     Indication: PULMONARY HYPERTENSION
     Dosage: 40 MG, 3X/DAY
     Route: 048
  8. REVATIO [Suspect]
     Active Substance: SILDENAFIL CITRATE
     Indication: COR PULMONALE
  9. PROVENTIL HFA [Concomitant]
     Active Substance: ALBUTEROL SULFATE
     Indication: WHEEZING
     Dosage: 2 DF, AS NEEDED (90 MCG/ACTUATION, EVERY 6 HOURS)
     Route: 055
  10. ERGOCALCIFEROL. [Concomitant]
     Active Substance: ERGOCALCIFEROL
     Dosage: 100000 IU, WEEKLY (50000 IU, 2 CAPSULES )
     Route: 048
  11. ELAVIL [Concomitant]
     Active Substance: AMITRIPTYLINE HYDROCHLORIDE
     Dosage: 25 MG, 1X/DAY (BED TIME)
     Route: 048
  12. PROBIOTIC COMPLEX [Concomitant]
     Dosage: UNK
     Route: 048
  13. OPSUMIT [Concomitant]
     Active Substance: MACITENTAN
     Dosage: 10 MG, DAILY
     Route: 048
  14. BUTALBITAL COMPOUND W/ CODEINE [Concomitant]
     Indication: HEADACHE
  15. BUTALBITAL COMPOUND W/ CODEINE [Concomitant]
     Indication: MIGRAINE

REACTIONS (2)
  - Drug hypersensitivity [Unknown]
  - Product use issue [Unknown]
